FAERS Safety Report 15289067 (Version 1)
Quarter: 2018Q3

REPORT INFORMATION
  Report Type: Report from Study
  Country: FR (occurrence: FR)
  Receive Date: 20180817
  Receipt Date: 20180817
  Transmission Date: 20181010
  Serious: Yes (Congenital Anomaly, Other)
  Sender: FDA-Public Use
  Company Number: FR-B.I. PHARMACEUTICALS,INC./RIDGEFIELD-2018-12-002526

PATIENT
  Age: 1 Year
  Sex: Male

DRUGS (3)
  1. ISENTRESS [Suspect]
     Active Substance: RALTEGRAVIR POTASSIUM
     Indication: HIV INFECTION
     Route: 064
     Dates: start: 20151110, end: 20161208
  2. TENOFOVIR [Suspect]
     Active Substance: TENOFOVIR
     Indication: HIV INFECTION
     Route: 064
     Dates: start: 20151110, end: 20160721
  3. VIRAMUNE [Suspect]
     Active Substance: NEVIRAPINE
     Indication: HIV INFECTION
     Route: 064
     Dates: start: 20151110, end: 20160721

REACTIONS (2)
  - Brachydactyly [Unknown]
  - Foetal exposure during pregnancy [Unknown]
